FAERS Safety Report 7792344-0 (Version None)
Quarter: 2011Q4

REPORT INFORMATION
  Report Type: 
  Country: None (occurrence: None)
  Receive Date: 20111003
  Receipt Date: 20110929
  Transmission Date: 20120403
  Serious: Yes (Death)
  Sender: FDA-Public Use
  Company Number: PHHY2011CH84754

PATIENT
  Age: 67 Year
  Sex: Female
  Weight: 67 kg

DRUGS (4)
  1. ONBREZ [Suspect]
     Indication: CHRONIC OBSTRUCTIVE PULMONARY DISEASE
     Dosage: 150 UG, UNK
     Dates: start: 20110318, end: 20110318
  2. LEVOTHYROXINE SODIUM [Concomitant]
  3. SPIRIVA [Concomitant]
  4. LISINOPRIL [Concomitant]

REACTIONS (1)
  - DEATH [None]
